FAERS Safety Report 7684350-1 (Version None)
Quarter: 2011Q3

REPORT INFORMATION
  Report Type: 
  Country: None (occurrence: None)
  Receive Date: 20110816
  Receipt Date: 20110808
  Transmission Date: 20111222
  Serious: Yes (Hospitalization)
  Sender: FDA-Public Use
  Company Number: ZA-BRISTOL-MYERS SQUIBB COMPANY-15952997

PATIENT
  Age: 47 Year
  Sex: Male

DRUGS (4)
  1. STREPTOMYCIN [Suspect]
     Indication: TUBERCULOSIS
     Dates: start: 20100301
  2. TENOFOVIR DISOPROXIL FUMARATE [Suspect]
     Indication: HIV INFECTION
     Dates: start: 20100501
  3. LAMIVUDINE [Concomitant]
     Indication: HIV INFECTION
     Dates: start: 20100501
  4. EFAVIRENZ [Concomitant]
     Indication: HIV INFECTION
     Dates: start: 20100501

REACTIONS (1)
  - RENAL FAILURE ACUTE [None]
